FAERS Safety Report 5126989-3 (Version None)
Quarter: 2006Q4

REPORT INFORMATION
  Report Type: 
  Country: None (occurrence: None)
  Receive Date: 20061013
  Receipt Date: 20060806
  Transmission Date: 20070319
  Serious: Yes (Hospitalization)
  Sender: FDA-Public Use
  Company Number: NLWYE556207AUG06

PATIENT
  Sex: Male

DRUGS (4)
  1. ENBREL [Suspect]
     Indication: ANKYLOSING SPONDYLITIS
     Route: 058
     Dates: start: 20050801, end: 20060101
  2. ENBREL [Suspect]
     Route: 058
     Dates: start: 20060901
  3. PREDNISONE TAB [Concomitant]
  4. EPREX [Concomitant]

REACTIONS (2)
  - AMYLOIDOSIS [None]
  - BLOOD CREATININE INCREASED [None]
